FAERS Safety Report 24593548 (Version 1)
Quarter: 2024Q4

REPORT INFORMATION
  Report Type: Spontaneous
  Country: US (occurrence: US)
  Receive Date: 20241108
  Receipt Date: 20241108
  Transmission Date: 20250115
  Serious: Yes (Other)
  Sender: MYLAN
  Company Number: US-MYLANLABS-2024M1098992

PATIENT

DRUGS (1)
  1. INDOMETHACIN [Suspect]
     Active Substance: INDOMETHACIN
     Indication: Polyhydramnios
     Dosage: UNK
     Route: 064

REACTIONS (2)
  - Ductus arteriosus stenosis foetal [Not Recovered/Not Resolved]
  - Right ventricular failure [Unknown]
